FAERS Safety Report 25708093 (Version 1)
Quarter: 2025Q3

REPORT INFORMATION
  Report Type: Spontaneous
  Country: US (occurrence: US)
  Receive Date: 20250820
  Receipt Date: 20250820
  Transmission Date: 20251021
  Serious: Yes (Other)
  Sender: ELI LILLY AND COMPANY
  Company Number: US-ELI_LILLY_AND_COMPANY-US202508009470

PATIENT
  Sex: Female

DRUGS (7)
  1. OMVOH [Suspect]
     Active Substance: MIRIKIZUMAB-MRKZ
     Indication: Colitis ulcerative
     Route: 065
     Dates: start: 20250728, end: 20250728
  2. HYDROCORTISONE [Concomitant]
     Active Substance: HYDROCORTISONE
     Indication: Product used for unknown indication
  3. TYLENOL [Concomitant]
     Active Substance: ACETAMINOPHEN
     Indication: Product used for unknown indication
  4. CHOLECALCIFEROL [Concomitant]
     Active Substance: CHOLECALCIFEROL
     Indication: Product used for unknown indication
  5. LORATADINE [Concomitant]
     Active Substance: LORATADINE
     Indication: Product used for unknown indication
  6. DICLOFENAC [Concomitant]
     Active Substance: DICLOFENAC
     Indication: Product used for unknown indication
  7. PRENATAL VITAMINS [ASCORBIC ACID;BETACAROTENE [Concomitant]
     Indication: Product used for unknown indication

REACTIONS (3)
  - Chest discomfort [Recovered/Resolved]
  - Throat irritation [Recovered/Resolved]
  - Electrocardiogram T wave abnormal [Recovered/Resolved]

NARRATIVE: CASE EVENT DATE: 20250728
